FAERS Safety Report 22193099 (Version 1)
Quarter: 2023Q2

REPORT INFORMATION
  Report Type: Spontaneous
  Country: US (occurrence: None)
  Receive Date: 20230410
  Receipt Date: 20230410
  Transmission Date: 20230722
  Serious: Yes (Other)
  Sender: FDA-Public Use
  Company Number: None

PATIENT
  Age: 65 Year
  Sex: Female
  Weight: 71.8 kg

DRUGS (2)
  1. PACLITAXEL [Suspect]
     Active Substance: PACLITAXEL
     Indication: Breast cancer
     Dosage: OTHER FREQUENCY : ONCE;?
     Route: 041
     Dates: start: 20230309, end: 20230309
  2. Herzuma 285mg [Concomitant]
     Dates: start: 20230309

REACTIONS (4)
  - Cough [None]
  - Pharyngeal swelling [None]
  - Flushing [None]
  - Infusion related reaction [None]

NARRATIVE: CASE EVENT DATE: 20230309
